FAERS Safety Report 4558080-9 (Version None)
Quarter: 2005Q1

REPORT INFORMATION
  Report Type: 
  Country: None (occurrence: None)
  Receive Date: 20050121
  Receipt Date: 20040928
  Transmission Date: 20050727
  Serious: No
  Sender: FDA-Public Use
  Company Number: US-BRISTOL-MYERS SQUIBB COMPANY-12716031

PATIENT
  Age: 44 Year
  Sex: Female
  Weight: 91 kg

DRUGS (7)
  1. SERZONE [Suspect]
     Indication: DEPRESSION
     Route: 048
     Dates: end: 20040101
  2. LEXAPRO [Concomitant]
  3. FISH OIL [Concomitant]
  4. CHONDROITIN + GLUCOSAMINE [Concomitant]
  5. VITAMIN C [Concomitant]
  6. CALCIUM GLUCONATE [Concomitant]
  7. CONTRACEPTIVE [Concomitant]

REACTIONS (3)
  - ALOPECIA [None]
  - SOMNOLENCE [None]
  - WEIGHT INCREASED [None]
